FAERS Safety Report 6061186-9 (Version None)
Quarter: 2009Q1

REPORT INFORMATION
  Report Type: 
  Country: None (occurrence: None)
  Receive Date: 20090202
  Receipt Date: 20090121
  Transmission Date: 20090719
  Serious: Yes (Hospitalization)
  Sender: FDA-Public Use
  Company Number: SE-PFIZER INC-2009157881

PATIENT

DRUGS (8)
  1. LYRICA [Suspect]
     Indication: EPILEPSY
     Dosage: 75 MG, UNK
     Route: 048
     Dates: start: 20081125, end: 20081201
  2. TRIMETHOPRIM [Concomitant]
     Route: 048
  3. FURIX [Concomitant]
     Route: 048
  4. DUROFERON [Concomitant]
     Route: 048
  5. PROBECID [Concomitant]
     Route: 048
  6. ENALAPRIL [Concomitant]
     Route: 048
  7. NEXIUM [Concomitant]
     Route: 048
  8. SELOKEN ZOC [Concomitant]
     Route: 048

REACTIONS (2)
  - BLOOD CREATININE INCREASED [None]
  - URINARY RETENTION [None]
